FAERS Safety Report 14731170 (Version 1)
Quarter: 2018Q2

REPORT INFORMATION
  Report Type: Spontaneous
  Country: JP (occurrence: JP)
  Receive Date: 20180406
  Receipt Date: 20180406
  Transmission Date: 20180711
  Serious: Yes (Hospitalization)
  Sender: FDA-Public Use
  Company Number: JP-009507513-1804JPN000465J

PATIENT
  Age: 52 Year
  Sex: Female

DRUGS (2)
  1. MINODRONIC ACID HYDRATE [Concomitant]
     Active Substance: MINODRONIC ACID
     Dosage: UNK
     Route: 048
  2. FOSAMAC TABLETS 35MG [Suspect]
     Active Substance: ALENDRONATE SODIUM
     Indication: OSTEOPOROSIS
     Dosage: UNK
     Route: 048

REACTIONS (2)
  - Hyperphosphatasaemia [Unknown]
  - Hypercalcaemia [Unknown]
